FAERS Safety Report 20054709 (Version 5)
Quarter: 2021Q4

REPORT INFORMATION
  Report Type: Spontaneous
  Country: US (occurrence: US)
  Receive Date: 20211110
  Receipt Date: 20211209
  Transmission Date: 20220303
  Serious: Yes (Hospitalization)
  Sender: FDA-Public Use
  Company Number: US-KARYOPHARM-2021KPT001299

PATIENT

DRUGS (15)
  1. XPOVIO [Suspect]
     Active Substance: SELINEXOR
     Indication: Plasma cell myeloma
     Dosage: 60 MG, WEEKLY
     Route: 048
     Dates: start: 20211008
  2. VELCADE [Concomitant]
     Active Substance: BORTEZOMIB
  3. SERTRALINE [Concomitant]
     Active Substance: SERTRALINE HYDROCHLORIDE
  4. TIMOLOL [Concomitant]
     Active Substance: TIMOLOL
  5. SPIRONOLACTONE [Concomitant]
     Active Substance: SPIRONOLACTONE
  6. PANTOPRAZOLE [Concomitant]
     Active Substance: PANTOPRAZOLE
  7. ZOFRAN [Concomitant]
     Active Substance: ONDANSETRON HYDROCHLORIDE
  8. LOPERAMIDE [Concomitant]
     Active Substance: LOPERAMIDE
  9. LEVOTHYROXINE [Concomitant]
     Active Substance: LEVOTHYROXINE
  10. LATANOPROST [Concomitant]
     Active Substance: LATANOPROST
  11. DEXAMETHASONE [Concomitant]
     Active Substance: DEXAMETHASONE
  12. DAPSONE [Concomitant]
     Active Substance: DAPSONE
  13. ATORVASTATIN [Concomitant]
     Active Substance: ATORVASTATIN
  14. ACYCLOVIR [Concomitant]
     Active Substance: ACYCLOVIR
  15. GRANIX [Concomitant]
     Active Substance: TBO-FILGRASTIM

REACTIONS (5)
  - Adverse drug reaction [Unknown]
  - Hallucination [Unknown]
  - Headache [Recovering/Resolving]
  - Nausea [Recovering/Resolving]
  - Constipation [Recovering/Resolving]

NARRATIVE: CASE EVENT DATE: 20210101
